FAERS Safety Report 6339955-7 (Version None)
Quarter: 2009Q3

REPORT INFORMATION
  Report Type: 
  Country: None (occurrence: None)
  Receive Date: 20090903
  Receipt Date: 20090824
  Transmission Date: 20100115
  Serious: Yes (Disabling, Other)
  Sender: FDA-Public Use
  Company Number: CH-ABBOTT-09P-151-0585533-00

PATIENT
  Sex: Male
  Weight: 80 kg

DRUGS (7)
  1. HUMIRA [Suspect]
     Indication: PSORIATIC ARTHROPATHY
     Dates: start: 20090220, end: 20090710
  2. HUMIRA [Suspect]
  3. METHOTREXATE [Suspect]
     Indication: PSORIATIC ARTHROPATHY
     Route: 058
     Dates: start: 20080408, end: 20080627
  4. METHOTREXATE [Suspect]
     Route: 058
     Dates: start: 20080627, end: 20090220
  5. METHOTREXATE [Suspect]
     Route: 048
     Dates: start: 20090220, end: 20090702
  6. SALAZOPYRIN [Concomitant]
     Indication: PSORIATIC ARTHROPATHY
     Dates: start: 20080901, end: 20090201
  7. CORTICOSTEROIDS [Concomitant]
     Indication: PSORIATIC ARTHROPATHY
     Dosage: LOW DOSE SYSTEMATIC
     Dates: start: 20080401, end: 20090301

REACTIONS (2)
  - LOCAL SWELLING [None]
  - NON-HODGKIN'S LYMPHOMA [None]
